FAERS Safety Report 12564444 (Version 1)
Quarter: 2016Q3

REPORT INFORMATION
  Report Type: Spontaneous
  Country: US (occurrence: None)
  Receive Date: 20160715
  Receipt Date: 20160715
  Transmission Date: 20161109
  Serious: Yes (Hospitalization)
  Sender: FDA-Public Use
  Company Number: None

PATIENT
  Age: 87 Year
  Sex: Female
  Weight: 58.06 kg

DRUGS (13)
  1. OMEPRAZOLE DR [Concomitant]
     Active Substance: OMEPRAZOLE
  2. CALCIUM [Concomitant]
     Active Substance: CALCIUM
  3. NITROFURANTOIN-MONO-MCR 100MG [Suspect]
     Active Substance: NITROFURANTOIN\NITROFURANTOIN MONOHYDRATE
     Indication: CYSTITIS
     Route: 048
     Dates: start: 20160531, end: 20160603
  4. MAGNESIUM [Concomitant]
     Active Substance: MAGNESIUM
  5. VITAMIN C [Concomitant]
     Active Substance: ASCORBIC ACID
  6. ACIDOPHILUS [Concomitant]
     Active Substance: LACTOBACILLUS ACIDOPHILUS
  7. FISH OIL [Concomitant]
     Active Substance: FISH OIL
  8. VITAMIN D [Concomitant]
     Active Substance: CHOLECALCIFEROL
  9. ASPIRIN. [Concomitant]
     Active Substance: ASPIRIN
  10. AMLODIPINE BESYLATE. [Concomitant]
     Active Substance: AMLODIPINE BESYLATE
  11. PROBIOTIC [Concomitant]
     Active Substance: PROBIOTICS NOS
  12. CRANBERRY PILLS [Concomitant]
  13. VITAMIN B12 [Concomitant]
     Active Substance: CYANOCOBALAMIN

REACTIONS (4)
  - Discomfort [None]
  - Erythema [None]
  - Rash generalised [None]
  - Fatigue [None]

NARRATIVE: CASE EVENT DATE: 20160603
